FAERS Safety Report 5175557-6 (Version None)
Quarter: 2006Q4

REPORT INFORMATION
  Report Type: 
  Country: None (occurrence: None)
  Receive Date: 20061215
  Receipt Date: 20061201
  Transmission Date: 20070319
  Serious: Yes (Other)
  Sender: FDA-Public Use
  Company Number: PHBS2006EC18753

PATIENT
  Age: 8 Year
  Sex: Female

DRUGS (1)
  1. ZADITEN [Suspect]
     Indication: CONJUNCTIVITIS ALLERGIC
     Dosage: 1 DRP, BID
     Dates: start: 20060401, end: 20061115

REACTIONS (13)
  - ASTHMA [None]
  - CONDITION AGGRAVATED [None]
  - DRY EYE [None]
  - DRY SKIN [None]
  - ECZEMA [None]
  - EYE IRRITATION [None]
  - EYE PAIN [None]
  - HEADACHE [None]
  - LIP DRY [None]
  - LIP ULCERATION [None]
  - PHOTOPHOBIA [None]
  - RHINITIS ALLERGIC [None]
  - URTICARIA [None]
